FAERS Safety Report 21288667 (Version 1)
Quarter: 2022Q3

REPORT INFORMATION
  Report Type: Report from Study
  Country: US (occurrence: US)
  Receive Date: 20220902
  Receipt Date: 20220902
  Transmission Date: 20221027
  Serious: Yes (Hospitalization, Other)
  Sender: FDA-Public Use
  Company Number: US-BRISTOL-MYERS SQUIBB COMPANY-2022-096124

PATIENT
  Age: 65 Year
  Sex: Male
  Weight: 97.07 kg

DRUGS (6)
  1. REVLIMID [Suspect]
     Active Substance: LENALIDOMIDE
     Indication: Plasma cell myeloma
     Route: 048
     Dates: start: 20210507
  2. CALCIUM CARBONATE [Concomitant]
     Active Substance: CALCIUM CARBONATE
     Dosage: 500
  3. VITAMIN D3 [Concomitant]
     Active Substance: CHOLECALCIFEROL
  4. PRILOSEC [Concomitant]
     Active Substance: OMEPRAZOLE MAGNESIUM
  5. PROBIOTICS NOS [Concomitant]
     Active Substance: PROBIOTICS NOS
  6. VELCADE [Concomitant]
     Active Substance: BORTEZOMIB

REACTIONS (6)
  - COVID-19 [Unknown]
  - Meningitis [Unknown]
  - Coma [Unknown]
  - Thrombosis [Unknown]
  - Clostridium difficile infection [Recovered/Resolved]
  - Medical device site thrombosis [Unknown]

NARRATIVE: CASE EVENT DATE: 20210101
